FAERS Safety Report 12356837 (Version 1)
Quarter: 2016Q2

REPORT INFORMATION
  Report Type: Spontaneous
  Country: US (occurrence: US)
  Receive Date: 20160511
  Receipt Date: 20160511
  Transmission Date: 20160815
  Serious: No
  Sender: FDA-Public Use
  Company Number: US-PFIZER INC-2016221539

PATIENT
  Age: 53 Year
  Sex: Male
  Weight: 81.65 kg

DRUGS (3)
  1. LYRICA [Suspect]
     Active Substance: PREGABALIN
     Indication: CERVICOGENIC HEADACHE
     Dosage: 225MG CAPSULE AT NIGHT ONCE A DAY BY MOUTH
     Route: 048
     Dates: start: 201603
  2. NIFEDIPINE. [Concomitant]
     Active Substance: NIFEDIPINE
     Indication: BLOOD PRESSURE ABNORMAL
     Dosage: 90 MG, 1X/DAY
     Dates: start: 201506
  3. METOPROLOL. [Concomitant]
     Active Substance: METOPROLOL
     Indication: BLOOD PRESSURE ABNORMAL
     Dosage: 25 MG, 1X/DAY
     Dates: start: 201506

REACTIONS (10)
  - Product use issue [Unknown]
  - Feeling abnormal [Unknown]
  - Product use issue [Unknown]
  - Gait disturbance [Unknown]
  - Muscle contractions involuntary [Unknown]
  - Asthenia [Not Recovered/Not Resolved]
  - Fatigue [Unknown]
  - Movement disorder [Unknown]
  - Amnesia [Unknown]
  - Impaired work ability [Unknown]

NARRATIVE: CASE EVENT DATE: 201603
